FAERS Safety Report 15620826 (Version 1)
Quarter: 2018Q4

REPORT INFORMATION
  Report Type: Spontaneous
  Country: US (occurrence: US)
  Receive Date: 20181115
  Receipt Date: 20181115
  Transmission Date: 20190205
  Serious: Yes (Life-Threatening, Hospitalization)
  Sender: FDA-Public Use
  Company Number: US-ASTRAZENECA-2018SF46382

PATIENT
  Age: 30 Year
  Sex: Female

DRUGS (6)
  1. BEER [Concomitant]
     Active Substance: ALCOHOL
  2. AMITRIPTYLINE [Suspect]
     Active Substance: AMITRIPTYLINE
     Route: 048
  3. PROPRANOLOL [Suspect]
     Active Substance: PROPRANOLOL HYDROCHLORIDE
     Route: 048
  4. QUETIAPINE FUMARATE. [Suspect]
     Active Substance: QUETIAPINE FUMARATE
     Indication: BIPOLAR DISORDER
     Route: 048
  5. LAMICTAL [Suspect]
     Active Substance: LAMOTRIGINE
     Route: 048
  6. PRAZOSIN. [Suspect]
     Active Substance: PRAZOSIN
     Route: 048

REACTIONS (2)
  - Overdose [Recovered/Resolved]
  - Circulatory collapse [Recovered/Resolved]
